FAERS Safety Report 9896823 (Version 2)
Quarter: 2014Q3

REPORT INFORMATION
  Report Type: Spontaneous
  Country: US (occurrence: US)
  Receive Date: 20140213
  Receipt Date: 20140707
  Transmission Date: 20150326
  Serious: Yes (Hospitalization, Other)
  Sender: FDA-Public Use
  Company Number: US-009507513-1402USA004280

PATIENT
  Sex: Female

DRUGS (1)
  1. NUVARING [Suspect]
     Active Substance: ETHINYL ESTRADIOL\ETONOGESTREL
     Indication: CONTRACEPTION
     Route: 067

REACTIONS (13)
  - Thrombophlebitis superficial [Unknown]
  - Cast application [Unknown]
  - Irritable bowel syndrome [Unknown]
  - Insomnia [Unknown]
  - Wound infection staphylococcal [Unknown]
  - Pulmonary embolism [Unknown]
  - Tendon operation [Unknown]
  - Depression [Unknown]
  - Post-traumatic stress disorder [Unknown]
  - Hypothyroidism [Unknown]
  - Gastrooesophageal reflux disease [Unknown]
  - Polycystic ovaries [Unknown]
  - Bone disorder [Unknown]

NARRATIVE: CASE EVENT DATE: 2008
